FAERS Safety Report 7095740-2 (Version None)
Quarter: 2010Q4

REPORT INFORMATION
  Report Type: 
  Country: None (occurrence: None)
  Receive Date: 20101111
  Receipt Date: 20100924
  Transmission Date: 20110411
  Serious: Yes (Other)
  Sender: FDA-Public Use
  Company Number: PHEH2009US09838

PATIENT
  Sex: Female

DRUGS (8)
  1. ZOMETA [Suspect]
     Indication: METASTASES TO BONE
  2. ARIMIDEX [Concomitant]
     Dosage: UNK
  3. XELODA [Concomitant]
  4. TAXOL [Concomitant]
  5. TAXOTERE [Concomitant]
  6. GEMCITABINE [Concomitant]
  7. NEUPOGEN [Concomitant]
  8. CARBOPLATIN [Concomitant]

REACTIONS (30)
  - ADNEXA UTERI CYST [None]
  - ADRENAL CARCINOMA [None]
  - ANHEDONIA [None]
  - ANXIETY [None]
  - ASPIRATION PLEURAL CAVITY [None]
  - ATROPHIC VULVOVAGINITIS [None]
  - BREATH SOUNDS ABNORMAL [None]
  - CHRONIC SINUSITIS [None]
  - DENTAL OPERATION [None]
  - DIABETES MELLITUS [None]
  - ETHMOID SINUS SURGERY [None]
  - GENERAL PHYSICAL HEALTH DETERIORATION [None]
  - HEPATIC STEATOSIS [None]
  - INSOMNIA [None]
  - MEDICAL DEVICE REMOVAL [None]
  - METASTASES TO ABDOMINAL CAVITY [None]
  - METASTASES TO BONE [None]
  - METASTASES TO NECK [None]
  - MULTIPLE INJURIES [None]
  - NEOPLASM MALIGNANT [None]
  - OSTEONECROSIS OF JAW [None]
  - PAIN [None]
  - PERIODONTITIS [None]
  - PLEURAL EFFUSION [None]
  - PLEURAL FIBROSIS [None]
  - SINUS ANTROSTOMY [None]
  - TUMOUR MARKER INCREASED [None]
  - VAGINAL INFECTION [None]
  - VULVOVAGINAL MYCOTIC INFECTION [None]
  - VULVOVAGINAL PRURITUS [None]
